FAERS Safety Report 5869648-1 (Version None)
Quarter: 2008Q3

REPORT INFORMATION
  Report Type: 
  Country: None (occurrence: None)
  Receive Date: 20080904
  Receipt Date: 20080721
  Transmission Date: 20090109
  Serious: No
  Sender: FDA-Public Use
  Company Number: US-BAYER-200829468NA

PATIENT
  Sex: Female

DRUGS (2)
  1. CIPRO [Suspect]
     Indication: DRUG USE FOR UNKNOWN INDICATION
     Dates: start: 20080201
  2. LEVAQUIN [Suspect]
     Dates: start: 20080201

REACTIONS (9)
  - ASTHENIA [None]
  - HYPOAESTHESIA [None]
  - JOINT RANGE OF MOTION DECREASED [None]
  - MUSCULAR WEAKNESS [None]
  - MUSCULOSKELETAL PAIN [None]
  - MYALGIA [None]
  - OEDEMA PERIPHERAL [None]
  - PAIN IN EXTREMITY [None]
  - TENDON PAIN [None]
